FAERS Safety Report 4579386-3 (Version None)
Quarter: 2005Q1

REPORT INFORMATION
  Report Type: 
  Country: None (occurrence: None)
  Receive Date: 20050209
  Receipt Date: 20050124
  Transmission Date: 20050727
  Serious: No
  Sender: FDA-Public Use
  Company Number: USA050188790

PATIENT
  Age: 15 Year
  Sex: Female
  Weight: 50 kg

DRUGS (1)
  1. STRATTERA [Suspect]
     Indication: ATTENTION DEFICIT/HYPERACTIVITY DISORDER
     Dosage: 60 M G DAY

REACTIONS (8)
  - ARTHRALGIA [None]
  - ASPARTATE AMINOTRANSFERASE INCREASED [None]
  - ASTHMA EXERCISE INDUCED [None]
  - FALL [None]
  - INFECTIOUS MONONUCLEOSIS [None]
  - JOINT SPRAIN [None]
  - ONYCHOMYCOSIS [None]
  - SLEEP DISORDER [None]
